FAERS Safety Report 9772122 (Version 2)
Quarter: 2013Q4

REPORT INFORMATION
  Report Type: Spontaneous
  Country: IT (occurrence: IT)
  Receive Date: 20131219
  Receipt Date: 20131224
  Transmission Date: 20140711
  Serious: Yes (Hospitalization)
  Sender: FDA-Public Use
  Company Number: IT-JNJFOC-20131207759

PATIENT
  Age: 56 Year
  Sex: Male

DRUGS (1)
  1. SPORANOX [Suspect]
     Indication: FUNGAL INFECTION
     Route: 048
     Dates: start: 20131116, end: 20131123

REACTIONS (2)
  - Exfoliative rash [Recovering/Resolving]
  - Rash erythematous [Recovering/Resolving]
